FAERS Safety Report 6282549-2 (Version None)
Quarter: 2009Q3

REPORT INFORMATION
  Report Type: 
  Country: None (occurrence: None)
  Receive Date: 20090724
  Receipt Date: 20090715
  Transmission Date: 20100115
  Serious: Yes (Hospitalization, Other)
  Sender: FDA-Public Use
  Company Number: DE-BAYER-200925735GPV

PATIENT
  Age: 87 Year
  Sex: Female
  Weight: 73 kg

DRUGS (7)
  1. ASPIRIN [Suspect]
     Indication: THROMBOSIS PROPHYLAXIS
     Dosage: TOTAL DAILY DOSE: 100 MG  UNIT DOSE: 100 MG
     Route: 048
     Dates: end: 20090514
  2. IBUPROFEN [Suspect]
     Indication: BACK PAIN
     Dosage: 20 - 30 TABLETS A WEEK
     Route: 048
     Dates: start: 20080101, end: 20090513
  3. IBUPROFEN [Suspect]
     Route: 048
     Dates: start: 20060101, end: 20080101
  4. VALORON RETARD [Suspect]
     Indication: BACK PAIN
     Dosage: AS USED: 4/50 MG
     Route: 048
     Dates: start: 20090318, end: 20090507
  5. DIURAPID [Concomitant]
     Indication: HYPERTENSION
     Dosage: TOTAL DAILY DOSE: 40 MG
     Dates: end: 20090513
  6. THEOPHYLLINE [Concomitant]
     Dates: end: 20090514
  7. PENTAERYTHRITOL TETRANITRATE [Concomitant]
     Dates: end: 20090515

REACTIONS (8)
  - BACTERIURIA [None]
  - CARDIAC FAILURE [None]
  - DEHYDRATION [None]
  - DRUG ABUSE [None]
  - GASTRITIS EROSIVE [None]
  - NAUSEA [None]
  - RENAL FAILURE [None]
  - VOMITING [None]
